FAERS Safety Report 25565270 (Version 1)
Quarter: 2025Q3

REPORT INFORMATION
  Report Type: Report from Study
  Country: CA (occurrence: CA)
  Receive Date: 20250716
  Receipt Date: 20250716
  Transmission Date: 20251020
  Serious: Yes (Other)
  Sender: RANBAXY
  Company Number: CA-SUN PHARMACEUTICAL INDUSTRIES LTD-2025R1-512876

PATIENT
  Sex: Male

DRUGS (1)
  1. TILDRAKIZUMAB [Suspect]
     Active Substance: TILDRAKIZUMAB
     Indication: Psoriasis
     Route: 058
     Dates: start: 20240821

REACTIONS (2)
  - Neoplasm malignant [Unknown]
  - Therapy cessation [Unknown]
